FAERS Safety Report 18755347 (Version 2)
Quarter: 2021Q3

REPORT INFORMATION
  Report Type: Report from Study
  Country: NL (occurrence: NL)
  Receive Date: 20210119
  Receipt Date: 20210813
  Transmission Date: 20211014
  Serious: Yes (Hospitalization)
  Sender: FDA-Public Use
  Company Number: NL-ASTRAZENECA-2021A006425

PATIENT
  Sex: Female

DRUGS (1)
  1. FASLODEX [Suspect]
     Active Substance: FULVESTRANT
     Indication: NEOPLASM MALIGNANT
     Route: 030
     Dates: start: 20201112

REACTIONS (5)
  - General physical health deterioration [Unknown]
  - Pericardial disease [Unknown]
  - Oedema peripheral [Unknown]
  - Pleural effusion [Unknown]
  - Cardiac failure [Not Recovered/Not Resolved]
